FAERS Safety Report 24672006 (Version 2)
Quarter: 2024Q4

REPORT INFORMATION
  Report Type: Spontaneous
  Country: US (occurrence: US)
  Receive Date: 20241127
  Receipt Date: 20241210
  Transmission Date: 20250114
  Serious: Yes (Other)
  Sender: TEVA
  Company Number: US-TEVA-VS-3266869

PATIENT
  Age: 72 Year
  Sex: Male

DRUGS (3)
  1. BUDESONIDE [Suspect]
     Active Substance: BUDESONIDE
     Indication: Asthma-chronic obstructive pulmonary disease overlap syndrome
     Route: 055
  2. FLUTICASONE PROPIONATE AND SALMETEROL [Suspect]
     Active Substance: FLUTICASONE PROPIONATE\SALMETEROL XINAFOATE
     Indication: Asthma-chronic obstructive pulmonary disease overlap syndrome
     Route: 055
  3. MOMETASONE [Suspect]
     Active Substance: MOMETASONE
     Indication: Asthma-chronic obstructive pulmonary disease overlap syndrome
     Route: 055

REACTIONS (1)
  - Osteonecrosis [Recovering/Resolving]
